FAERS Safety Report 23405572 (Version 1)
Quarter: 2024Q1

REPORT INFORMATION
  Report Type: Spontaneous
  Country: US (occurrence: US)
  Receive Date: 20240116
  Receipt Date: 20240116
  Transmission Date: 20240410
  Serious: No
  Sender: FDA-Public Use
  Company Number: US-BAYER-2024A002125

PATIENT
  Age: 54 Year
  Sex: Female

DRUGS (4)
  1. ASTEPRO [Suspect]
     Active Substance: AZELASTINE HYDROCHLORIDE
     Indication: Hypersensitivity
     Dosage: SEPT: 1 SPRAY IN EACH NOSTRIL 1X/DAY OF HCI205.5MCG PER SPRAY. NOV INCREASED TO 2 SPRAYS 2X/DAY
     Route: 055
     Dates: start: 20230901, end: 20231229
  2. METOPROLOL [Concomitant]
     Active Substance: METOPROLOL
     Indication: Palpitations
     Dosage: UNK
     Dates: start: 20200515
  3. NIFEDIPINE [Concomitant]
     Active Substance: NIFEDIPINE
     Indication: Vasospasm
     Dosage: UNK
     Dates: start: 1997
  4. VITAMIN B12 [Concomitant]
     Active Substance: CYANOCOBALAMIN
     Indication: Vitamin B complex deficiency
     Dosage: UNK
     Dates: start: 2023

REACTIONS (4)
  - Wheezing [Recovering/Resolving]
  - Pharyngeal swelling [Recovering/Resolving]
  - Sinusitis [Recovering/Resolving]
  - Cough [Recovering/Resolving]

NARRATIVE: CASE EVENT DATE: 20230902
